FAERS Safety Report 15831165 (Version 3)
Quarter: 2021Q2

REPORT INFORMATION
  Report Type: Report from Study
  Country: FR (occurrence: FR)
  Receive Date: 20190116
  Receipt Date: 20210422
  Transmission Date: 20210716
  Serious: Yes (Hospitalization)
  Sender: FDA-Public Use
  Company Number: FR-ROCHE-2242580

PATIENT
  Age: 62 Year
  Sex: Male

DRUGS (8)
  1. OBINUTUZUMAB. [Suspect]
     Active Substance: OBINUTUZUMAB
     Route: 042
     Dates: start: 20181015
  2. VENETOCLAX. [Suspect]
     Active Substance: VENETOCLAX
     Dosage: FROM CYCLE 2
     Route: 065
     Dates: start: 20181112
  3. OBINUTUZUMAB. [Suspect]
     Active Substance: OBINUTUZUMAB
     Indication: MANTLE CELL LYMPHOMA
     Dosage: DOSE: 1000 MILLIGRAM (CYCLE 1: 100MG AT D1 AND 900MG AT D2, 1000MG AT D8 AND D15)?FROM 17?SEP?2018 T
     Route: 042
     Dates: start: 20180917, end: 20181001
  4. VENETOCLAX. [Suspect]
     Active Substance: VENETOCLAX
     Dosage: CYCLE 1BIS: 100 MG D15 TO D21
     Route: 065
     Dates: start: 20181029, end: 20181104
  5. VENETOCLAX. [Suspect]
     Active Substance: VENETOCLAX
     Indication: MANTLE CELL LYMPHOMA
     Dosage: CYCLE 1BIS: 20 MG D1 TO D7
     Route: 065
     Dates: start: 20181015, end: 20181021
  6. VENETOCLAX. [Suspect]
     Active Substance: VENETOCLAX
     Dosage: CYCLE 1BIS: 50 MG D8 TO D14
     Route: 065
     Dates: start: 20181022, end: 20181028
  7. VENETOCLAX. [Suspect]
     Active Substance: VENETOCLAX
     Dosage: CYCLE 1BIS: 200 MG D22 TO D28
     Route: 065
     Dates: start: 20181105, end: 20181111
  8. IBRUTINIB [Suspect]
     Active Substance: IBRUTINIB
     Indication: MANTLE CELL LYMPHOMA
     Dosage: FROM CYCLE 1
     Route: 048
     Dates: start: 20180918

REACTIONS (1)
  - Appendicitis [Recovered/Resolved]

NARRATIVE: CASE EVENT DATE: 20190105
